FAERS Safety Report 25997576 (Version 1)
Quarter: 2025Q4

REPORT INFORMATION
  Report Type: Spontaneous
  Country: CN (occurrence: CN)
  Receive Date: 20251104
  Receipt Date: 20251104
  Transmission Date: 20260117
  Serious: Yes (Hospitalization)
  Sender: ABBVIE
  Company Number: CN-ABBVIE-6529498

PATIENT
  Age: 32 Year
  Sex: Female
  Weight: 46 kg

DRUGS (5)
  1. VENCLEXTA [Suspect]
     Active Substance: VENETOCLAX
     Indication: Symptomatic treatment
     Dosage: 100 MILLIGRAM
     Route: 048
     Dates: start: 20250922, end: 20250922
  2. VENCLEXTA [Suspect]
     Active Substance: VENETOCLAX
     Indication: Symptomatic treatment
     Dosage: 400 MILLIGRAM?DISCONTINUED IN 2025
     Route: 048
     Dates: start: 20250924
  3. VENCLEXTA [Suspect]
     Active Substance: VENETOCLAX
     Indication: Symptomatic treatment
     Dosage: 200 MILLIGRAM
     Route: 048
     Dates: start: 20250923, end: 20250923
  4. IDARUBICIN HYDROCHLORIDE [Suspect]
     Active Substance: IDARUBICIN HYDROCHLORIDE
     Indication: Symptomatic treatment
     Dosage: 10 MILLIGRAM
     Route: 041
     Dates: start: 20250922, end: 20250924
  5. CYTARABINE [Suspect]
     Active Substance: CYTARABINE
     Indication: Symptomatic treatment
     Dosage: 140 MILLIGRAM
     Route: 041
     Dates: start: 20250922, end: 20250926

REACTIONS (2)
  - White blood cell count decreased [Not Recovered/Not Resolved]
  - Agranulocytosis [Not Recovered/Not Resolved]

NARRATIVE: CASE EVENT DATE: 20250925
